FAERS Safety Report 8117148-0 (Version None)
Quarter: 2012Q1

REPORT INFORMATION
  Report Type: 
  Country: None (occurrence: None)
  Receive Date: 20120206
  Receipt Date: 20120131
  Transmission Date: 20120608
  Serious: No
  Sender: FDA-Public Use
  Company Number: US-BAYER-2012-011065

PATIENT
  Age: 66 Year
  Sex: Female
  Weight: 77 kg

DRUGS (8)
  1. ALEVE (CAPLET) [Suspect]
     Dosage: 1 DF, BID
     Route: 048
     Dates: start: 20111101, end: 20120130
  2. VITAMIN B12 NOS [Concomitant]
  3. ALEVE (CAPLET) [Suspect]
     Indication: ARTHRITIS
     Dosage: 1 DF, BID
     Route: 048
     Dates: start: 20120101, end: 20120131
  4. ALEVE (CAPLET) [Suspect]
     Dosage: 1 DF, BID
     Route: 048
     Dates: start: 20111101, end: 20120129
  5. GLUCOSAMINE [Concomitant]
  6. EXTRA STRENGTH TYLENOL [Concomitant]
  7. ARIMIDEX [Concomitant]
  8. FLAX SEED OIL [Concomitant]

REACTIONS (1)
  - ARTHRITIS [None]
